FAERS Safety Report 9149267 (Version 1)
Quarter: 2013Q1

REPORT INFORMATION
  Report Type: Spontaneous
  Country: GB (occurrence: None)
  Receive Date: 20130130
  Receipt Date: 20130130
  Transmission Date: 20140127
  Serious: Yes (Other)
  Sender: FDA-Public Use
  Company Number: 1575640

PATIENT
  Age: 6 Year
  Sex: Male

DRUGS (7)
  1. TRACURIUM [Suspect]
     Indication: PARALYSIS
     Dosage: UNKNOWN (UNKNOWN) INTRAVENOUS (NOT OTHERWISE SPECIFIED)?12/26/2012  -  12/26/2012  (1 DAYS)
     Route: 042
     Dates: start: 20121226, end: 20121226
  2. PHENYTOIN [Suspect]
     Dosage: UNKNOWN  (UNKNOWN)  INTRAVENOUS (NOT OTHERWISE SPECIFIED)?12/26/2012  -  12/26/2012  (1 DAYS)?
     Route: 042
     Dates: start: 20121226, end: 20121226
  3. DIPRIVAN [Suspect]
     Dosage: 1 %  PERCENT  (UNKNOWN)  INTRAVENOUS (NOT OTHERWISE SPECIFIED)?12/26/2012  -  12/26/2012  (1 DAYS)
     Route: 042
     Dates: start: 20121226, end: 20121226
  4. SUXAMETHONIUM [Suspect]
     Dosage: UNKNOWN (UNKNOWN)  INTRAVENOUS (NOT OTHERWISE SPECIFIED)?12/26/2012  -  12/26/2012  (1 DAYS)
     Route: 042
     Dates: start: 20121226, end: 20121226
  5. CLOBAZAM [Concomitant]
  6. LEVETIRACETAM [Concomitant]
  7. TOPIRAMATE [Concomitant]

REACTIONS (2)
  - Blood creatine phosphokinase increased [None]
  - Thrombocytopenia [None]
